FAERS Safety Report 19968342 (Version 2)
Quarter: 2021Q4

REPORT INFORMATION
  Report Type: Spontaneous
  Country: KR (occurrence: None)
  Receive Date: 20211019
  Receipt Date: 20211101
  Transmission Date: 20220303
  Serious: Yes (Death, Other)
  Sender: FDA-Public Use
  Company Number: 2021A772708

PATIENT
  Age: 49 Year
  Sex: Female

DRUGS (2)
  1. LYNPARZA [Suspect]
     Active Substance: OLAPARIB
     Indication: Ovarian germ cell cancer stage III
     Route: 048
  2. LYNPARZA [Suspect]
     Active Substance: OLAPARIB
     Indication: Ovarian germ cell cancer stage III
     Route: 048

REACTIONS (7)
  - Death [Fatal]
  - Acute leukaemia [Unknown]
  - Myelosuppression [Unknown]
  - Anaemia [Unknown]
  - Nausea [Unknown]
  - Fatigue [Unknown]
  - Vomiting [Unknown]
